FAERS Safety Report 9880903 (Version 3)
Quarter: 2014Q1

REPORT INFORMATION
  Report Type: Spontaneous
  Country: US (occurrence: US)
  Receive Date: 20140207
  Receipt Date: 20140320
  Transmission Date: 20141002
  Serious: Yes (Hospitalization)
  Sender: FDA-Public Use
  Company Number: US-BEH-2011028875

PATIENT
  Age: 13 Year
  Sex: Female
  Weight: 49 kg

DRUGS (37)
  1. PRIVIGEN [Suspect]
     Indication: NEUTROPHIL FUNCTION DISORDER
     Dosage: 200 ML EVERY 28 DAYS
     Route: 042
     Dates: start: 20110501
  2. PRIVIGEN [Suspect]
     Indication: SELECTIVE POLYSACCHARIDE ANTIBODY DEFICIENCY
     Dosage: 20 GM VIAL
     Route: 042
  3. PRIVIGEN [Suspect]
     Dosage: VIA PERIPHERAL CATHETER PUMP
     Route: 042
     Dates: start: 20130530
  4. PRIVIGEN [Suspect]
     Dosage: VIA PERIPHERAL CATHETER PUMP
     Route: 042
     Dates: start: 20130530
  5. PRIVIGEN [Suspect]
     Dosage: 5 GM VIAL; 80 ML/HR X 30 MIN; INCRASE TO 160 ML/HR; INCREASE TO 300 ML/HR
     Route: 042
  6. PRIVIGEN [Suspect]
     Dosage: 20GM VIAL; 80 ML/HR X 30 MIN; INCRASE TO 160 ML/HR; INCREASE TO 300 ML/HR
     Route: 042
  7. PRIVIGEN [Suspect]
     Dosage: 5 GM VIAL;80ML/HRX30 MIN,THEN 160 ML/HR;THEN 300 ML/HR
     Route: 042
     Dates: start: 20140305, end: 20140305
  8. PRIVIGEN [Suspect]
     Dosage: 20 GM VIAL;80ML/HRX30 MIN,THEN 160 ML/HR;THEN 300 ML/HR
     Route: 042
     Dates: start: 20140305, end: 20140305
  9. HEPARIN [Concomitant]
  10. TRIAMCINOLONE CREAM [Concomitant]
  11. FLUCONAZOLE [Concomitant]
  12. ALBUTEROL [Concomitant]
  13. ZYRTEC [Concomitant]
  14. BACTRIM [Concomitant]
  15. PROAIR [Concomitant]
  16. TEEN MULTIVITAMIN [Concomitant]
  17. DIPHENHYDRAMINE [Concomitant]
  18. SODIUM CHLORIDE [Concomitant]
  19. EPI-PEN [Concomitant]
  20. HYDROCORTISONE CREAM [Concomitant]
  21. PERMETHRIN CREAM [Concomitant]
  22. CLOTRIMAZOLE AF CRM [Concomitant]
  23. TUMS CLACIUM TAB [Concomitant]
  24. VITAMIN D [Concomitant]
  25. TYLENOL EX-STR [Concomitant]
  26. NEXPLANON [Concomitant]
  27. LIDOCAINE PRILOCAINE [Concomitant]
  28. SODIUM CHLORIDE [Concomitant]
  29. LMX [Concomitant]
  30. PRILOSEC [Concomitant]
  31. NORCO [Concomitant]
  32. CEFTRIAXONE [Concomitant]
  33. NORMAL SALINE [Concomitant]
  34. AMPICILLIN-SULB [Concomitant]
  35. ALEVE [Concomitant]
  36. LIDOCAINE PRILOCAINE [Concomitant]
  37. FLUCONAZOLE [Concomitant]

REACTIONS (12)
  - Oral infection [Unknown]
  - Tooth abscess [Unknown]
  - Swelling [Unknown]
  - Tooth infection [Unknown]
  - Drug dose omission [Unknown]
  - Headache [Recovered/Resolved]
  - Nausea [Recovered/Resolved]
  - Headache [Recovered/Resolved]
  - Pharyngitis [Unknown]
  - Dehydration [Unknown]
  - Nausea [Unknown]
  - Vomiting [Unknown]
